FAERS Safety Report 17236508 (Version 10)
Quarter: 2023Q4

REPORT INFORMATION
  Report Type: Spontaneous
  Country: US (occurrence: US)
  Receive Date: 20200106
  Receipt Date: 20231129
  Transmission Date: 20240109
  Serious: Yes (Hospitalization, Disabling, Other)
  Sender: FDA-Public Use
  Company Number: US-VERTEX PHARMACEUTICALS-2019-013885

PATIENT
  Age: 21 Year
  Sex: Female
  Weight: 54 kg

DRUGS (4)
  1. TRIKAFTA [Suspect]
     Active Substance: ELEXACAFTOR\IVACAFTOR\TEZACAFTOR
     Indication: Cystic fibrosis
     Dosage: UNK BID
     Route: 048
     Dates: start: 20191109, end: 201911
  2. TRIKAFTA [Suspect]
     Active Substance: ELEXACAFTOR\IVACAFTOR\TEZACAFTOR
     Dosage: BID
     Route: 048
     Dates: start: 202001, end: 202001
  3. TRIKAFTA [Suspect]
     Active Substance: ELEXACAFTOR\IVACAFTOR\TEZACAFTOR
     Dosage: MODIFIED DOSE
     Route: 048
  4. TRIKAFTA [Suspect]
     Active Substance: ELEXACAFTOR\IVACAFTOR\TEZACAFTOR
     Dosage: UNK FREQ
     Route: 048
     Dates: start: 20200526, end: 20200528

REACTIONS (25)
  - Seizure [Unknown]
  - Transient ischaemic attack [Unknown]
  - Muscular weakness [Recovering/Resolving]
  - Confusional state [Unknown]
  - Blindness unilateral [Recovered/Resolved]
  - Muscle twitching [Recovered/Resolved]
  - Coordination abnormal [Recovered/Resolved]
  - Fine motor skill dysfunction [Recovered/Resolved]
  - Hypoaesthesia [Recovered/Resolved]
  - Hemiparesis [Recovered/Resolved]
  - Dysarthria [Recovered/Resolved]
  - Tremor [Recovered/Resolved]
  - Eye movement disorder [Recovered/Resolved]
  - Migraine [Recovered/Resolved]
  - Asthenia [Unknown]
  - Gait disturbance [Unknown]
  - Blood creatine phosphokinase increased [Unknown]
  - Headache [Unknown]
  - Cerebrovascular accident [Unknown]
  - Muscle disorder [Recovering/Resolving]
  - Gastrointestinal disorder [Recovering/Resolving]
  - Mental disorder [Unknown]
  - Memory impairment [Unknown]
  - Secretion discharge [Unknown]
  - Blood pressure increased [Unknown]

NARRATIVE: CASE EVENT DATE: 20191101
